FAERS Safety Report 7970148-3 (Version None)
Quarter: 2011Q4

REPORT INFORMATION
  Report Type: 
  Country: None (occurrence: None)
  Receive Date: 20111122
  Receipt Date: 20110712
  Transmission Date: 20120403
  Serious: Yes (Disabling, Other)
  Sender: FDA-Public Use
  Company Number: PHHY2011US54227

PATIENT
  Age: 49 Year
  Sex: Female
  Weight: 52.5 kg

DRUGS (8)
  1. ASPIRIN [Concomitant]
  2. CYANOCOBALAMIN [Concomitant]
  3. COENZYME Q10 [Concomitant]
  4. IBUPROFEN [Concomitant]
  5. B COMPLEX (NICOTINAMIDE, PYRIDOXINE HYDROCHLORIDE, RIBOFLAVIN, THIAMIN [Concomitant]
  6. MULTI-VIT (VITAMINS NOS) [Concomitant]
  7. FISH OIL [Concomitant]
  8. GILENYA [Suspect]
     Indication: MULTIPLE SCLEROSIS
     Dosage: 0.5 MG, QD, ORAL
     Route: 048
     Dates: start: 20110610

REACTIONS (2)
  - DIZZINESS [None]
  - ASTHENIA [None]
